FAERS Safety Report 13735066 (Version 1)
Quarter: 2017Q3

REPORT INFORMATION
  Report Type: Spontaneous
  Country: US (occurrence: US)
  Receive Date: 20170710
  Receipt Date: 20170710
  Transmission Date: 20171127
  Serious: No
  Sender: FDA-Public Use
  Company Number: US-THE MEDICINES COMPANY-US-MDCO-16-00420

PATIENT
  Age: 80 Year
  Sex: Female

DRUGS (3)
  1. IONSYS [Suspect]
     Active Substance: FENTANYL HYDROCHLORIDE
     Dates: start: 20161005
  2. IONSYS [Suspect]
     Active Substance: FENTANYL HYDROCHLORIDE
     Dates: start: 20161005, end: 20161005
  3. IONSYS [Suspect]
     Active Substance: FENTANYL HYDROCHLORIDE
     Indication: PAIN MANAGEMENT
     Dosage: NOT REPORTED
     Dates: start: 20161004

REACTIONS (4)
  - Blood pressure systolic decreased [Recovered/Resolved]
  - Sedation [Recovered/Resolved]
  - Medication error [Recovered/Resolved]
  - Respiratory disorder [Recovered/Resolved]

NARRATIVE: CASE EVENT DATE: 20161005
